FAERS Safety Report 10380745 (Version 1)
Quarter: 2014Q3

REPORT INFORMATION
  Report Type: Spontaneous
  Country: US (occurrence: US)
  Receive Date: 20140813
  Receipt Date: 20140813
  Transmission Date: 20150326
  Serious: No
  Sender: FDA-Public Use
  Company Number: US-DRREDDYS-USA/USA/14/0040388

PATIENT
  Age: 59 Year
  Sex: Male

DRUGS (30)
  1. PANTOPRAZOLE SODIUM DR TABLETS 20MG + 40MG [Concomitant]
     Active Substance: PANTOPRAZOLE SODIUM
     Indication: PRODUCT USED FOR UNKNOWN INDICATION
     Route: 065
  2. LEFLUNOMIDE. [Concomitant]
     Active Substance: LEFLUNOMIDE
     Indication: PRODUCT USED FOR UNKNOWN INDICATION
     Route: 065
  3. AMANTADINE [Concomitant]
     Active Substance: AMANTADINE
     Indication: HICCUPS
     Route: 065
  4. BACLOFEN. [Suspect]
     Active Substance: BACLOFEN
     Route: 065
  5. ASPIRIN. [Concomitant]
     Active Substance: ASPIRIN
     Indication: PRODUCT USED FOR UNKNOWN INDICATION
     Route: 065
  6. CLOBETASOL [Concomitant]
     Active Substance: CLOBETASOL
     Indication: PRODUCT USED FOR UNKNOWN INDICATION
     Route: 065
  7. HUMAN NPH INSULIN [Concomitant]
     Active Substance: INSULIN HUMAN
     Indication: PRODUCT USED FOR UNKNOWN INDICATION
     Dosage: 36 UNITS IN THE MORNING, AND 24 UNITS AT BEDTIME
     Route: 065
  8. AMIODARONE [Concomitant]
     Active Substance: AMIODARONE
     Indication: PRODUCT USED FOR UNKNOWN INDICATION
     Route: 065
  9. CALCITRIOL. [Concomitant]
     Active Substance: CALCITRIOL
     Indication: PRODUCT USED FOR UNKNOWN INDICATION
     Route: 065
  10. BACLOFEN. [Suspect]
     Active Substance: BACLOFEN
     Indication: HICCUPS
     Route: 065
  11. MYCOPHENOLATE [Concomitant]
     Active Substance: MYCOPHENOLIC ACID
     Indication: PRODUCT USED FOR UNKNOWN INDICATION
     Route: 065
  12. WARFARIN [Concomitant]
     Active Substance: WARFARIN
     Indication: PRODUCT USED FOR UNKNOWN INDICATION
     Dosage: MG ON TUESDAY, THURSDAY AND SATURDAY; 2.5 MG ON MONDAY, WEDNESDAY, FRIDAY AND SUNDAY
     Route: 065
  13. DESIPRAMINE [Concomitant]
     Active Substance: DESIPRAMINE
     Indication: IMPAIRED GASTRIC EMPTYING
     Route: 065
  14. MAGNESIUM OXIDE. [Concomitant]
     Active Substance: MAGNESIUM OXIDE
     Indication: PRODUCT USED FOR UNKNOWN INDICATION
     Route: 065
  15. METOPROLOL TARTRATE. [Concomitant]
     Active Substance: METOPROLOL TARTRATE
     Indication: PRODUCT USED FOR UNKNOWN INDICATION
     Route: 065
  16. ALUMINUM HYDROXIDE/MAGNESIUM TRISILICATE [Concomitant]
     Indication: IMPAIRED GASTRIC EMPTYING
     Route: 065
  17. CYCLOBENZAPRINE [Concomitant]
     Active Substance: CYCLOBENZAPRINE
     Indication: HICCUPS
     Route: 065
  18. LORAZEPAM. [Concomitant]
     Active Substance: LORAZEPAM
     Indication: HICCUPS
     Route: 065
  19. OLANZAPINE TABLETS 2.5 MG, 5 MG, 7.5 MG + 10 MG [Suspect]
     Active Substance: OLANZAPINE
     Route: 065
  20. INSULIN ASPARTATE [Concomitant]
     Active Substance: INSULIN ASPART
     Indication: PRODUCT USED FOR UNKNOWN INDICATION
     Route: 065
  21. PHENYTOIN. [Concomitant]
     Active Substance: PHENYTOIN
     Route: 065
  22. OLANZAPINE TABLETS 2.5 MG, 5 MG, 7.5 MG + 10 MG [Suspect]
     Active Substance: OLANZAPINE
     Indication: HICCUPS
     Route: 065
  23. OLANZAPINE TABLETS 2.5 MG, 5 MG, 7.5 MG + 10 MG [Suspect]
     Active Substance: OLANZAPINE
     Route: 065
  24. BACLOFEN. [Suspect]
     Active Substance: BACLOFEN
     Route: 065
  25. FUROSEMIDE. [Concomitant]
     Active Substance: FUROSEMIDE
     Indication: PRODUCT USED FOR UNKNOWN INDICATION
     Route: 065
  26. PREDNISONE. [Concomitant]
     Active Substance: PREDNISONE
     Indication: PRODUCT USED FOR UNKNOWN INDICATION
     Route: 065
  27. CALCIUM CARBONATE/VITAMIN D [Concomitant]
     Active Substance: CALCIUM CARBONATE\VITAMIN D
     Indication: PRODUCT USED FOR UNKNOWN INDICATION
     Route: 065
  28. METOCLOPRAMIDE. [Concomitant]
     Active Substance: METOCLOPRAMIDE
     Indication: IMPAIRED GASTRIC EMPTYING
     Route: 065
  29. METOLAZONE. [Concomitant]
     Active Substance: METOLAZONE
     Indication: PRODUCT USED FOR UNKNOWN INDICATION
     Route: 065
  30. PHENYTOIN. [Concomitant]
     Active Substance: PHENYTOIN
     Indication: HICCUPS
     Route: 065

REACTIONS (1)
  - Extrapyramidal disorder [Recovered/Resolved]
